FAERS Safety Report 5379081-7 (Version None)
Quarter: 2007Q3

REPORT INFORMATION
  Report Type: 
  Country: None (occurrence: None)
  Receive Date: 20070702
  Receipt Date: 20070621
  Transmission Date: 20080115
  Serious: Yes (Other)
  Sender: FDA-Public Use
  Company Number: 235105K07USA

PATIENT
  Age: 30 Year
  Sex: Female

DRUGS (5)
  1. REBIF [Suspect]
     Indication: MULTIPLE SCLEROSIS
     Dosage: 44 MCG, 3 IN 1 WEEKS, SUBCUTANEOUS
     Route: 058
     Dates: start: 20060706, end: 20070501
  2. LISINOPRIL [Suspect]
     Dates: start: 20000101, end: 20070408
  3. METHADONE (METHADONE /00068901/) [Suspect]
  4. STEROIDS (CORTICOSTERIOD) [Concomitant]
  5. FOURTEEN TO FIFTEEN UNSPECIFIED MEDICATIONS (ALL OTHER THERAPEUTIC PRO [Concomitant]

REACTIONS (1)
  - ANAPHYLACTIC SHOCK [None]
